FAERS Safety Report 24333102 (Version 3)
Quarter: 2024Q4

REPORT INFORMATION
  Report Type: Spontaneous
  Country: US (occurrence: US)
  Receive Date: 20240918
  Receipt Date: 20241218
  Transmission Date: 20250115
  Serious: Yes (Death, Hospitalization, Other)
  Sender: PFIZER
  Company Number: US-PFIZER INC-PV202400121405

PATIENT
  Age: 95 Year
  Sex: Male
  Weight: 77.4 kg

DRUGS (4)
  1. INLYTA [Suspect]
     Active Substance: AXITINIB
     Indication: Malignant neoplasm of renal pelvis
     Dosage: 1 MG
     Route: 048
     Dates: start: 20240731, end: 20240731
  2. INLYTA [Suspect]
     Active Substance: AXITINIB
     Indication: Renal cancer
     Dosage: 0.5 MG, DAILY
     Route: 048
     Dates: start: 20240925
  3. INLYTA [Suspect]
     Active Substance: AXITINIB
     Dosage: 1 MG, 2X/WEEK
     Dates: start: 20240925
  4. INLYTA [Suspect]
     Active Substance: AXITINIB
     Dosage: 0.5 MG, 2X/WEEK
     Dates: start: 20240925

REACTIONS (3)
  - Death [Fatal]
  - Diarrhoea [Recovered/Resolved]
  - Off label use [Unknown]

NARRATIVE: CASE EVENT DATE: 20240801
